FAERS Safety Report 18012876 (Version 1)
Quarter: 2020Q3

REPORT INFORMATION
  Report Type: Spontaneous
  Country: SE (occurrence: SE)
  Receive Date: 20200713
  Receipt Date: 20200713
  Transmission Date: 20201103
  Serious: Yes (Hospitalization)
  Sender: FDA-Public Use
  Company Number: SE-ACCORD-189812

PATIENT
  Age: 42 Year
  Sex: Male

DRUGS (7)
  1. DEXAMETHASONE. [Suspect]
     Active Substance: DEXAMETHASONE
     Indication: PRECURSOR T-LYMPHOBLASTIC LYMPHOMA/LEUKAEMIA
     Dosage: DOSERING 16+16+8
     Route: 048
     Dates: start: 20200526, end: 20200530
  2. ONDANSETRON [Concomitant]
     Active Substance: ONDANSETRON
  3. CYTARABINE/CYTARABINE HYDROCHLORIDE/CYTARABINE OCFOSFATE [Suspect]
     Active Substance: CYTARABINE
     Indication: PRECURSOR T-LYMPHOBLASTIC LYMPHOMA/LEUKAEMIA
     Dosage: DOSAGE 4000 X 2
     Route: 042
     Dates: start: 20200530, end: 20200531
  4. VINCRISTINE [Suspect]
     Active Substance: VINCRISTINE
     Indication: PRECURSOR T-LYMPHOBLASTIC LYMPHOMA/LEUKAEMIA
     Route: 042
     Dates: start: 20200526
  5. METHOTREXATE. [Suspect]
     Active Substance: METHOTREXATE
     Indication: PRECURSOR T-LYMPHOBLASTIC LYMPHOMA/LEUKAEMIA
     Dosage: DOSAGE 1000
     Route: 042
     Dates: start: 20200526
  6. PURINETHOL [Concomitant]
     Active Substance: MERCAPTOPURINE
  7. PEGASPARGASE [Concomitant]
     Active Substance: PEGASPARGASE

REACTIONS (2)
  - Gastric ulcer [Not Recovered/Not Resolved]
  - Gastrointestinal injury [Not Recovered/Not Resolved]

NARRATIVE: CASE EVENT DATE: 202006
